FAERS Safety Report 8820700 (Version 1)
Quarter: 2012Q4

REPORT INFORMATION
  Report Type: 
  Country: BR (occurrence: BR)
  Receive Date: 20121002
  Receipt Date: 20121002
  Transmission Date: 20130627
  Serious: Yes (Hospitalization, Other)
  Sender: FDA-Public Use
  Company Number: PHHY2012BR085187

PATIENT
  Sex: Male

DRUGS (4)
  1. EXELON PATCH [Suspect]
     Dosage: 1 patch (9.5mg) a day
     Route: 062
  2. ERANZ [Concomitant]
     Indication: DEMENTIA ALZHEIMER^S TYPE
     Dosage: 1 tabet a day
  3. EBIXA [Concomitant]
     Indication: DEMENTIA ALZHEIMER^S TYPE
     Dosage: 1 tablet a day
  4. EXELON PATCH [Suspect]
     Indication: DEMENTIA ALZHEIMER^S TYPE
     Dosage: 1 patch (4.6mg) a day
     Route: 062

REACTIONS (3)
  - Renal failure [Recovered/Resolved]
  - Abdominal discomfort [Recovered/Resolved]
  - Vomiting [Recovered/Resolved]
